FAERS Safety Report 16872485 (Version 1)
Quarter: 2019Q4

REPORT INFORMATION
  Report Type: Spontaneous
  Country: US (occurrence: US)
  Receive Date: 20191001
  Receipt Date: 20191001
  Transmission Date: 20200122
  Serious: Yes (Other)
  Sender: FDA-Public Use
  Company Number: US-DRREDDYS-USA/USA/19/0114683

PATIENT
  Age: 8 Year
  Sex: Female

DRUGS (9)
  1. MELPHALAN HYDROCHLORIDE FOR INJECTION [Suspect]
     Active Substance: MELPHALAN HYDROCHLORIDE
     Indication: BONE MARROW CONDITIONING REGIMEN
  2. METHOTREXATE. [Suspect]
     Active Substance: METHOTREXATE
     Indication: GRAFT VERSUS HOST DISEASE
  3. ALEMTUZUMAB [Suspect]
     Active Substance: ALEMTUZUMAB
     Indication: BONE MARROW CONDITIONING REGIMEN
  4. ABATACEPT [Suspect]
     Active Substance: ABATACEPT
     Indication: PROPHYLAXIS
  5. THIOTEPA. [Suspect]
     Active Substance: THIOTEPA
     Indication: BONE MARROW CONDITIONING REGIMEN
  6. TACROLIMUS. [Suspect]
     Active Substance: TACROLIMUS
     Indication: GRAFT VERSUS HOST DISEASE
  7. FLUDARABINE [Suspect]
     Active Substance: FLUDARABINE PHOSPHATE
     Indication: BONE MARROW CONDITIONING REGIMEN
  8. MYCOPHENOLATE MOFETIL. [Suspect]
     Active Substance: MYCOPHENOLATE MOFETIL
     Indication: PRODUCT USED FOR UNKNOWN INDICATION
  9. FOSPHENYTOIN [Suspect]
     Active Substance: FOSPHENYTOIN
     Indication: PRODUCT USED FOR UNKNOWN INDICATION

REACTIONS (2)
  - Posterior reversible encephalopathy syndrome [Unknown]
  - Thrombotic microangiopathy [Unknown]
